FAERS Safety Report 6539003-X (Version None)
Quarter: 2010Q1

REPORT INFORMATION
  Report Type: 
  Country: None (occurrence: None)
  Receive Date: 20100113
  Receipt Date: 20100113
  Transmission Date: 20100710
  Serious: Yes (Other)
  Sender: FDA-Public Use
  Company Number: None

PATIENT
  Age: 51 Year
  Sex: Male
  Weight: 95.2554 kg

DRUGS (1)
  1. ZICAM COLD REMEDY NASAL SWABS [Suspect]
     Indication: NASOPHARYNGITIS
     Dosage: 1 SWAB 2 TIMES DAILY NASAL
     Route: 045
     Dates: start: 20060101, end: 20090601

REACTIONS (1)
  - HYPOSMIA [None]
